FAERS Safety Report 24835668 (Version 1)
Quarter: 2025Q1

REPORT INFORMATION
  Report Type: Spontaneous
  Country: US (occurrence: US)
  Receive Date: 20250113
  Receipt Date: 20250113
  Transmission Date: 20250409
  Serious: No
  Sender: TRIS PHARMA, INC.
  Company Number: US-TRIS PHARMA, INC.-25US011811

PATIENT

DRUGS (9)
  1. QUILLIVANT XR [Suspect]
     Active Substance: METHYLPHENIDATE HYDROCHLORIDE
     Indication: Attention deficit hyperactivity disorder
     Dosage: 5 MILLILITRE, QD, EVERY MORNING, STARTED 4-5 YEARS AGO (OR LONGER)
     Route: 048
  2. CITALOPRAM [Suspect]
     Active Substance: CITALOPRAM
     Indication: Attention deficit hyperactivity disorder
  3. CITALOPRAM [Suspect]
     Active Substance: CITALOPRAM
     Indication: Oppositional defiant disorder
  4. CITALOPRAM [Suspect]
     Active Substance: CITALOPRAM
     Indication: Autism spectrum disorder
  5. CITALOPRAM [Suspect]
     Active Substance: CITALOPRAM
     Indication: Behaviour disorder
  6. GUANFACINE [Suspect]
     Active Substance: GUANFACINE
     Indication: Attention deficit hyperactivity disorder
  7. GUANFACINE [Suspect]
     Active Substance: GUANFACINE
     Indication: Oppositional defiant disorder
  8. GUANFACINE [Suspect]
     Active Substance: GUANFACINE
     Indication: Autism spectrum disorder
  9. GUANFACINE [Suspect]
     Active Substance: GUANFACINE
     Indication: Behaviour disorder

REACTIONS (2)
  - Gastroenteritis viral [Unknown]
  - Anxiety [Not Recovered/Not Resolved]

NARRATIVE: CASE EVENT DATE: 20240101
